FAERS Safety Report 8366471-3 (Version None)
Quarter: 2012Q2

REPORT INFORMATION
  Report Type: 
  Country: None (occurrence: None)
  Receive Date: 20120517
  Receipt Date: 20120512
  Transmission Date: 20120825
  Serious: No
  Sender: FDA-Public Use
  Company Number: US-BAYER-2012-047898

PATIENT
  Sex: Female

DRUGS (1)
  1. NAPROXEN SODIUM [Suspect]
     Route: 048

REACTIONS (3)
  - DIARRHOEA [None]
  - MUSCLE STRAIN [None]
  - BREAST PAIN [None]
